FAERS Safety Report 9238776 (Version 1)
Quarter: 2013Q1

REPORT INFORMATION
  Report Type: Spontaneous
  Country: US (occurrence: None)
  Receive Date: 20121107
  Receipt Date: 20121107
  Transmission Date: 20140127
  Serious: No
  Sender: FDA-Public Use
  Company Number: 2012HGS-003798

PATIENT
  Age: 56 Year
  Sex: Female
  Weight: 49.44 kg

DRUGS (10)
  1. BENLYSTA [Suspect]
     Indication: SYSTEMIC LUPUS ERYTHEMATOSUS
     Dosage: 1 IN 14 D
     Route: 041
     Dates: start: 20120308
  2. PROCARDIA (NIFEDIPINE) (NIFEDIPINE) [Concomitant]
  3. ZOFRAN (ONDANSETRON) (ONDANSETRON) [Concomitant]
  4. PREDNISONE (PREDNISONE) (PREDNISONE) [Concomitant]
  5. DAPSONE (DAPSONE) (DAPSONE) [Concomitant]
  6. FOLIC ACID (FOLIC ACID) (FOLIC ACID) [Concomitant]
  7. IMURAN (AZATHIOPRINE) (AZATHIOPRINE) [Concomitant]
  8. AMBIEN (ZOLPIDEM TARTRATE) (ZOLPIDEM TARTRATE) [Concomitant]
  9. DIOVAN (VALSARTAN) (VALSARTAN) [Concomitant]
  10. OMEPRAZOLE (OMEPRAZOLE) (OMEPRAZOLE) [Concomitant]

REACTIONS (2)
  - Haemoglobin decreased [None]
  - White blood cell count decreased [None]
